FAERS Safety Report 10453500 (Version 2)
Quarter: 2014Q3

REPORT INFORMATION
  Report Type: Report from Study
  Country: BR (occurrence: BR)
  Receive Date: 20140915
  Receipt Date: 20140929
  Transmission Date: 20150326
  Serious: Yes (Hospitalization, Other)
  Sender: FDA-Public Use
  Company Number: BR-BAYER-2014-136135

PATIENT
  Sex: Female

DRUGS (6)
  1. CLINDAMYCIN [Suspect]
     Active Substance: CLINDAMYCIN\CLINDAMYCIN PHOSPHATE
     Indication: SURGERY
     Dosage: 600 MG, QID
     Route: 048
     Dates: start: 201407, end: 201408
  2. BETAFERON [Suspect]
     Active Substance: INTERFERON BETA-1B
     Indication: RELAPSING-REMITTING MULTIPLE SCLEROSIS
     Dosage: 1 ML, QOD
     Route: 058
  3. DIPYRONE [Concomitant]
     Active Substance: DIPYRONE
     Indication: FEELING COLD
  4. BETAFERON [Suspect]
     Active Substance: INTERFERON BETA-1B
     Indication: RELAPSING-REMITTING MULTIPLE SCLEROSIS
     Dosage: UNK
     Route: 058
     Dates: start: 199903
  5. CLINDAMYCIN [Suspect]
     Active Substance: CLINDAMYCIN\CLINDAMYCIN PHOSPHATE
     Indication: TRAUMATIC FRACTURE
     Dosage: 600 MG, QID
     Route: 048
     Dates: start: 201308
  6. DIPYRONE [Concomitant]
     Active Substance: DIPYRONE
     Indication: TREMOR
     Dosage: 40 GTT, QOD
     Route: 048
     Dates: start: 199903

REACTIONS (16)
  - Injection site pain [Not Recovered/Not Resolved]
  - Tibia fracture [Recovering/Resolving]
  - Procedural complication [Recovered/Resolved]
  - Feeling abnormal [Recovered/Resolved]
  - Fall [Recovered/Resolved]
  - Multiple sclerosis [Not Recovered/Not Resolved]
  - Asthenopia [Not Recovered/Not Resolved]
  - Abdominal pain [Recovered/Resolved]
  - Impaired healing [Recovered/Resolved]
  - Visual impairment [Not Recovered/Not Resolved]
  - Diarrhoea [Recovered/Resolved]
  - Abdominal pain [Recovered/Resolved]
  - Diarrhoea [Recovered/Resolved]
  - Injection site mass [Not Recovered/Not Resolved]
  - Fibula fracture [Recovering/Resolving]
  - Gait disturbance [Not Recovered/Not Resolved]

NARRATIVE: CASE EVENT DATE: 2004
